FAERS Safety Report 11405666 (Version 1)
Quarter: 2015Q3

REPORT INFORMATION
  Report Type: Spontaneous
  Country: US (occurrence: US)
  Receive Date: 20150821
  Receipt Date: 20150821
  Transmission Date: 20151125
  Serious: No
  Sender: FDA-Public Use
  Company Number: US-NOVOPROD-429014

PATIENT
  Age: 66 Year
  Sex: Male

DRUGS (1)
  1. VICTOZA [Suspect]
     Active Substance: LIRAGLUTIDE
     Indication: TYPE 2 DIABETES MELLITUS
     Dosage: UNK
     Route: 058
     Dates: start: 20141020

REACTIONS (8)
  - Feeling jittery [Unknown]
  - Diarrhoea [Unknown]
  - Chest discomfort [Unknown]
  - Tremor [Unknown]
  - Back pain [Unknown]
  - Heart rate increased [Recovered/Resolved]
  - Nausea [Unknown]
  - Constipation [Unknown]
